FAERS Safety Report 9222370 (Version 1)
Quarter: 2013Q1

REPORT INFORMATION
  Report Type: Spontaneous
  Country: US (occurrence: US)
  Receive Date: 20120907
  Receipt Date: 20120907
  Transmission Date: 20140127
  Serious: No
  Sender: FDA-Public Use
  Company Number: TH-2012-00596

PATIENT
  Sex: 0

DRUGS (1)
  1. EGRIFTA [Suspect]
     Indication: LIPODYSTROPHY ACQUIRED
     Dates: end: 20120802

REACTIONS (6)
  - Feeling cold [None]
  - Dyspnoea [None]
  - Influenza like illness [None]
  - Night sweats [None]
  - Injection site pain [None]
  - Injection site bruising [None]
